FAERS Safety Report 7705667-8 (Version None)
Quarter: 2011Q3

REPORT INFORMATION
  Report Type: 
  Country: None (occurrence: None)
  Receive Date: 20110824
  Receipt Date: 20110812
  Transmission Date: 20111222
  Serious: Yes (Hospitalization)
  Sender: FDA-Public Use
  Company Number: UA-SANOFI-AVENTIS-2011SA043720

PATIENT
  Age: 68 Year
  Sex: Female
  Weight: 66 kg

DRUGS (7)
  1. DICLOFENAC SODIUM [Concomitant]
     Route: 048
     Dates: start: 20110601
  2. DICLOFENAC SODIUM [Concomitant]
     Route: 065
     Dates: start: 20110601
  3. BISOPROLOL FUMARATE [Concomitant]
     Route: 065
  4. BISOPROLOL FUMARATE [Concomitant]
     Route: 065
     Dates: start: 20110606
  5. DRONEDARONE HCL [Suspect]
     Indication: ATRIAL FIBRILLATION
     Route: 048
     Dates: start: 20110606
  6. WARFARIN SODIUM [Concomitant]
     Route: 065
  7. ENALAPRIL MALEATE [Concomitant]
     Route: 065

REACTIONS (1)
  - ISCHAEMIC STROKE [None]
